FAERS Safety Report 24204192 (Version 3)
Quarter: 2024Q3

REPORT INFORMATION
  Report Type: Report from Study
  Country: US (occurrence: US)
  Receive Date: 20240813
  Receipt Date: 20240822
  Transmission Date: 20241016
  Serious: Yes (Hospitalization)
  Sender: ALEXION PHARMACEUTICALS
  Company Number: US-ALXN-202408GLO000310US

PATIENT
  Sex: Male

DRUGS (10)
  1. ULTOMIRIS [Suspect]
     Active Substance: RAVULIZUMAB-CWVZ
     Indication: Myasthenia gravis
     Dosage: 3300 MILLIGRAM
     Route: 065
     Dates: start: 20231108
  2. AMIODARONE [Concomitant]
     Active Substance: AMIODARONE
     Indication: Atrial fibrillation
     Dosage: 200 MILLIGRAM, BID
     Route: 048
     Dates: start: 20240608
  3. ARFORMOTEROL [Concomitant]
     Active Substance: ARFORMOTEROL
     Indication: Chronic obstructive pulmonary disease
     Dosage: 15 MCG/2ML, BID
     Dates: start: 20240608, end: 20240725
  4. ATROVENT HFA [Concomitant]
     Active Substance: IPRATROPIUM BROMIDE
     Indication: Chronic obstructive pulmonary disease
     Dosage: 17 MICROGRAM, BID
     Dates: start: 20240608, end: 20240725
  5. BUDESONIDE [Concomitant]
     Active Substance: BUDESONIDE
     Indication: Product used for unknown indication
     Dosage: 0.5 MILLIGRAM, BID
     Dates: start: 20240608, end: 20240725
  6. DEXTROMETHORPHAN\GUAIFENESIN [Concomitant]
     Active Substance: DEXTROMETHORPHAN\GUAIFENESIN
     Indication: Chronic obstructive pulmonary disease
     Dosage: 100 MILLIGRAM PER 5 MILLILITRE, 6 HOURS AS NEEDED UPTO 10 DAYS
     Route: 048
     Dates: start: 20240608, end: 20240725
  7. DIGOXIN [Concomitant]
     Active Substance: DIGOXIN
     Indication: Atrial fibrillation
     Dosage: 125 MICROGRAM, QD
     Route: 048
     Dates: start: 20240608
  8. FUROSEMIDE [Concomitant]
     Active Substance: FUROSEMIDE
     Indication: Cardiac failure
     Dosage: 40 GRAM, QD
     Route: 048
     Dates: start: 20240608, end: 20240728
  9. LEVOTHYROXINE [Concomitant]
     Active Substance: LEVOTHYROXINE\LEVOTHYROXINE SODIUM
     Indication: Hypothyroidism
     Dosage: 100 MICROGRAM, QD
     Route: 048
     Dates: start: 20240625, end: 20240725
  10. ROSUVASTATIN [Concomitant]
     Active Substance: ROSUVASTATIN\ROSUVASTATIN CALCIUM
     Indication: Product used for unknown indication
     Dosage: 20 MILLIGRAM, QD
     Route: 048
     Dates: start: 20240806

REACTIONS (1)
  - Urinary tract infection [Recovering/Resolving]

NARRATIVE: CASE EVENT DATE: 20240803
